FAERS Safety Report 20090419 (Version 1)
Quarter: 2021Q4

REPORT INFORMATION
  Report Type: Report from Study
  Country: US (occurrence: US)
  Receive Date: 20211119
  Receipt Date: 20211119
  Transmission Date: 20220303
  Serious: Yes (Other)
  Sender: FDA-Public Use
  Company Number: US-SUNOVION-2021SUN004283

PATIENT

DRUGS (1)
  1. KYNMOBI [Suspect]
     Active Substance: APOMORPHINE HYDROCHLORIDE
     Dosage: 10 MG
     Route: 060
     Dates: start: 20211108

REACTIONS (8)
  - Blood pressure decreased [Unknown]
  - Pallor [Unknown]
  - Feeling hot [Unknown]
  - Heart rate decreased [Unknown]
  - Nausea [Unknown]
  - Hyperhidrosis [Unknown]
  - Dizziness [Unknown]
  - Somnolence [Unknown]

NARRATIVE: CASE EVENT DATE: 20211108
